FAERS Safety Report 25945927 (Version 1)
Quarter: 2025Q4

REPORT INFORMATION
  Report Type: Spontaneous
  Country: JP (occurrence: JP)
  Receive Date: 20251021
  Receipt Date: 20251021
  Transmission Date: 20260118
  Serious: Yes (Other)
  Sender: MERCK SHARP & DOHME LLC
  Company Number: JP-009507513-2341265

PATIENT
  Age: 8 Decade
  Sex: Male

DRUGS (2)
  1. PEMBROLIZUMAB [Suspect]
     Active Substance: PEMBROLIZUMAB
     Indication: Renal cancer
  2. LENVATINIB [Concomitant]
     Active Substance: LENVATINIB
     Indication: Renal cancer

REACTIONS (1)
  - Immune-mediated adverse reaction [Unknown]
